FAERS Safety Report 12531547 (Version 2)
Quarter: 2016Q3

REPORT INFORMATION
  Report Type: Spontaneous
  Country: AR (occurrence: AR)
  Receive Date: 20160706
  Receipt Date: 20160715
  Transmission Date: 20161109
  Serious: Yes (Other)
  Sender: FDA-Public Use
  Company Number: AR-ABBVIE-16K-007-1667475-00

PATIENT
  Age: 49 Year
  Sex: Male
  Weight: 68 kg

DRUGS (1)
  1. HUMIRA [Suspect]
     Active Substance: ADALIMUMAB
     Indication: PSORIASIS
     Route: 058
     Dates: start: 201509, end: 201603

REACTIONS (3)
  - Pituitary tumour benign [Recovering/Resolving]
  - Male sexual dysfunction [Recovering/Resolving]
  - Drug effect incomplete [Unknown]
